FAERS Safety Report 17617890 (Version 1)
Quarter: 2020Q2

REPORT INFORMATION
  Report Type: Spontaneous
  Country: US (occurrence: US)
  Receive Date: 20200402
  Receipt Date: 20200402
  Transmission Date: 20200713
  Serious: Yes (Death, Other)
  Sender: FDA-Public Use
  Company Number: US-ELI_LILLY_AND_COMPANY-US202004000056

PATIENT
  Sex: Male

DRUGS (2)
  1. HUMALOG [Suspect]
     Active Substance: INSULIN LISPRO
     Indication: PRODUCT USED FOR UNKNOWN INDICATION
     Dosage: UNK UNK, UNKNOWN
     Route: 065
  2. IBUPROFAN [Suspect]
     Active Substance: IBUPROFEN
     Indication: PRODUCT USED FOR UNKNOWN INDICATION
     Dosage: UNK UNK, UNKNOWN
     Route: 065

REACTIONS (7)
  - Hypophagia [Not Recovered/Not Resolved]
  - Myocardial infarction [Recovered/Resolved]
  - Neck pain [Unknown]
  - Blood glucose decreased [Not Recovered/Not Resolved]
  - Cholangiocarcinoma [Fatal]
  - Hepatic cirrhosis [Not Recovered/Not Resolved]
  - Back pain [Not Recovered/Not Resolved]
